FAERS Safety Report 8305825-8 (Version None)
Quarter: 2012Q2

REPORT INFORMATION
  Report Type: 
  Country: None (occurrence: None)
  Receive Date: 20120418
  Receipt Date: 20120405
  Transmission Date: 20120825
  Serious: Yes (Hospitalization, Other)
  Sender: FDA-Public Use
  Company Number: AUR-APL-2012-01799

PATIENT
  Age: 59 Year
  Sex: Male

DRUGS (13)
  1. SERTRALINE HYDROCHLORIDE [Suspect]
     Indication: PRODUCT USED FOR UNKNOWN INDICATION
     Dosage: 50 MG (50 MG, 1 IN 1 D), ORAL
     Route: 048
     Dates: start: 20111202, end: 20111205
  2. OXYCODONE HYDROCHLORIDE [Concomitant]
  3. NEBIVOLOL [Concomitant]
  4. PERINDOPRIL ERBUMINE [Suspect]
     Indication: PRODUCT USED FOR UNKNOWN INDICATION
     Dosage: 2 MG (2 MG, 1 IN 1 D), ORAL
     Route: 048
     Dates: start: 20100701, end: 20111205
  5. DARDEGIC (ACETYLSALICYLATE LYSINE) [Concomitant]
  6. NITROGLYCERIN SPRAY [Concomitant]
  7. LYRICA [Suspect]
     Indication: PRODUCT USED FOR UNKNOWN INDICATION
     Dosage: (50 MG), ORAL
     Route: 048
     Dates: start: 20111202
  8. TAHOR (ATORBASTATIN CALCIUM) [Concomitant]
  9. PERINDOPRIL ERBUMINE [Concomitant]
  10. ACETAMINOPHEN [Concomitant]
  11. POLYETHYLENE GLYCOL [Concomitant]
  12. ZOLOFT [Concomitant]
  13. OXYCONTIN [Concomitant]

REACTIONS (3)
  - LIP OEDEMA [None]
  - SALIVARY HYPERSECRETION [None]
  - DYSPHAGIA [None]
